FAERS Safety Report 4300185-1 (Version None)
Quarter: 2004Q1

REPORT INFORMATION
  Report Type: 
  Country: None (occurrence: None)
  Receive Date: 20040218
  Receipt Date: 20040209
  Transmission Date: 20041129
  Serious: Yes (Other)
  Sender: FDA-Public Use
  Company Number: STA-AE-04-MTX-054

PATIENT
  Age: 52 Year
  Sex: Male

DRUGS (10)
  1. METHOTREXATE [Suspect]
     Indication: ACUTE PROMYELOCYTIC LEUKAEMIA
     Dosage: 25 MG 1X PER 1 DAY
     Dates: start: 20030919, end: 20031203
  2. METHOTREXATE [Suspect]
     Indication: ACUTE PROMYELOCYTIC LEUKAEMIA
     Dosage: 25 MG 1X PER 1 DAY
     Dates: start: 20040123
  3. ATRA, CONTROL OF GEMTUZUMAB OZOGAMICIN (ALL-TRANS RETINOIC ACID, CONTR [Suspect]
     Indication: ACUTE PROMYELOCYTIC LEUKAEMIA
     Dosage: 80 MG 1 PER 1 DAY; SEE IMAGE
     Dates: start: 20030904, end: 20030918
  4. ATRA, CONTROL OF GEMTUZUMAB OZOGAMICIN (ALL-TRANS RETINOIC ACID, CONTR [Suspect]
     Indication: ACUTE PROMYELOCYTIC LEUKAEMIA
     Dosage: 80 MG 1 PER 1 DAY; SEE IMAGE
     Dates: start: 20031204, end: 20031218
  5. MERCAPTOPURINE [Suspect]
     Indication: ACUTE PROMYELOCYTIC LEUKAEMIA
     Dosage: SEE IMAGE
     Route: 048
     Dates: start: 20030919, end: 20031004
  6. MERCAPTOPURINE [Suspect]
     Indication: ACUTE PROMYELOCYTIC LEUKAEMIA
     Dosage: SEE IMAGE
     Route: 048
     Dates: start: 20031005, end: 20031009
  7. MERCAPTOPURINE [Suspect]
     Indication: ACUTE PROMYELOCYTIC LEUKAEMIA
     Dosage: SEE IMAGE
     Route: 048
     Dates: start: 20031010, end: 20031203
  8. MERCAPTOPURINE [Suspect]
     Indication: ACUTE PROMYELOCYTIC LEUKAEMIA
     Dosage: SEE IMAGE
     Route: 048
     Dates: start: 20040123
  9. CHEMOTHERAPEUTIC AGENTS, CONTROL FOR GEMTUZUMAB OZOGAMICIN (CHEMOTHERA [Suspect]
     Indication: ACUTE PROMYELOCYTIC LEUKAEMIA
  10. FOLIC ACID [Concomitant]

REACTIONS (2)
  - APLASIA [None]
  - BONE MARROW DEPRESSION [None]
